FAERS Safety Report 18490166 (Version 1)
Quarter: 2020Q4

REPORT INFORMATION
  Report Type: Spontaneous
  Country: US (occurrence: US)
  Receive Date: 20201111
  Receipt Date: 20201111
  Transmission Date: 20210114
  Serious: Yes (Other)
  Sender: FDA-Public Use
  Company Number: US-ELI_LILLY_AND_COMPANY-US202001012936

PATIENT
  Age: 73 Year
  Sex: Male

DRUGS (1)
  1. TRULICITY [Suspect]
     Active Substance: DULAGLUTIDE
     Indication: PRODUCT USED FOR UNKNOWN INDICATION
     Dosage: UNK UNK, WEEKLY (1/W)
     Route: 065
     Dates: start: 201906, end: 201909

REACTIONS (11)
  - Nasopharyngitis [Unknown]
  - Blood pressure decreased [Unknown]
  - Neoplasm malignant [Unknown]
  - Weight decreased [Unknown]
  - Feeling abnormal [Unknown]
  - Decreased appetite [Unknown]
  - Dizziness [Unknown]
  - Blood glucose abnormal [Unknown]
  - Blood glucose decreased [Unknown]
  - Illness [Unknown]
  - Nausea [Unknown]

NARRATIVE: CASE EVENT DATE: 2019
